FAERS Safety Report 19084377 (Version 1)
Quarter: 2021Q2

REPORT INFORMATION
  Report Type: Spontaneous
  Country: US (occurrence: US)
  Receive Date: 20210401
  Receipt Date: 20210401
  Transmission Date: 20210717
  Serious: Yes (Other)
  Sender: FDA-Public Use
  Company Number: US-ORGANON-2101USA009602

PATIENT
  Age: 16 Year
  Sex: Female
  Weight: 99.73 kg

DRUGS (2)
  1. DEPAKOTE [Concomitant]
     Active Substance: DIVALPROEX SODIUM
     Dosage: 500 MILLIGRAM ER DAILY
  2. NEXPLANON [Suspect]
     Active Substance: ETONOGESTREL
     Indication: CONTRACEPTION
     Dosage: 1ST IMPLANT (68 MG), ONCE, IN LEFT UPPER ARM
     Route: 059
     Dates: start: 20200610, end: 20210115

REACTIONS (8)
  - Device dislocation [Recovered/Resolved]
  - Implant site pain [Unknown]
  - Chlamydial infection [Unknown]
  - Device breakage [Recovered/Resolved]
  - Wrong technique in device usage process [Unknown]
  - Nausea [Unknown]
  - Vomiting [Unknown]
  - Wrong technique in device usage process [Unknown]

NARRATIVE: CASE EVENT DATE: 202006
